FAERS Safety Report 5932448-8 (Version None)
Quarter: 2008Q4

REPORT INFORMATION
  Report Type: 
  Country: None (occurrence: None)
  Receive Date: 20081027
  Receipt Date: 20081027
  Transmission Date: 20090506
  Serious: Yes (Hospitalization)
  Sender: FDA-Public Use
  Company Number: None

PATIENT
  Age: 52 Year
  Sex: Male
  Weight: 156.491 kg

DRUGS (1)
  1. HEPARIN SODIUM [Suspect]
     Dosage: 25,000 UNITS 21 PUMP IV DRIP
     Route: 041
     Dates: start: 20081009, end: 20081015

REACTIONS (7)
  - ARTHRALGIA [None]
  - DIARRHOEA [None]
  - DIZZINESS [None]
  - DYSPNOEA [None]
  - OROPHARYNGEAL PAIN [None]
  - TINNITUS [None]
  - VISUAL IMPAIRMENT [None]
